FAERS Safety Report 7432439-4 (Version None)
Quarter: 2011Q2

REPORT INFORMATION
  Report Type: 
  Country: None (occurrence: None)
  Receive Date: 20110414
  Receipt Date: 20110331
  Transmission Date: 20111010
  Serious: No
  Sender: FDA-Public Use
  Company Number: SEP-2011-00004

PATIENT
  Sex: Male

DRUGS (1)
  1. PLENAXIS [Suspect]
     Indication: PROSTATE CANCER
     Dates: start: 20100712, end: 20110328

REACTIONS (1)
  - DRUG HYPERSENSITIVITY [None]
